FAERS Safety Report 9448896 (Version 3)
Quarter: 2014Q1

REPORT INFORMATION
  Report Type: Report from Study
  Country: US (occurrence: US)
  Receive Date: 20130808
  Receipt Date: 20140327
  Transmission Date: 20141002
  Serious: Yes (Other)
  Sender: FDA-Public Use
  Company Number: US-BRISTOL-MYERS SQUIBB COMPANY-19162387

PATIENT
  Age: 42 Year
  Sex: Female
  Weight: 72.4 kg

DRUGS (1)
  1. IPILIMUMAB [Suspect]
     Indication: MALIGNANT MELANOMA
     Dosage: TOTAL DOSE 221.1MG?RECENT DOSE 25-JUN-13?LAST ADMINISTERED DOSE:30AUG13?TOTAL DOSE:214.5 MG
     Route: 042
     Dates: start: 20130625

REACTIONS (2)
  - Hypokalaemia [Recovered/Resolved]
  - Diarrhoea [Recovered/Resolved]
